FAERS Safety Report 20370271 (Version 1)
Quarter: 2022Q1

REPORT INFORMATION
  Report Type: Spontaneous
  Country: US (occurrence: None)
  Receive Date: 20220122
  Receipt Date: 20220122
  Transmission Date: 20220423
  Serious: Yes (Other)
  Sender: FDA-Public Use
  Company Number: None

PATIENT
  Age: 52 Year
  Sex: Female
  Weight: 60.75 kg

DRUGS (2)
  1. METHYLPHENIDATE [Suspect]
     Active Substance: METHYLPHENIDATE
     Indication: Attention deficit hyperactivity disorder
     Dosage: OTHER QUANTITY : 60 TABLET(S);?FREQUENCY : TWICE A DAY;?
     Route: 048
     Dates: start: 20220120, end: 20220122
  2. LAMACTAL [Concomitant]

REACTIONS (11)
  - Dizziness [None]
  - Impaired work ability [None]
  - Gait inability [None]
  - Fall [None]
  - Urinary incontinence [None]
  - Dysstasia [None]
  - Product substitution issue [None]
  - Aggression [None]
  - Therapeutic response shortened [None]
  - Disturbance in attention [None]
  - Product formulation issue [None]

NARRATIVE: CASE EVENT DATE: 20220120
